FAERS Safety Report 10595586 (Version 5)
Quarter: 2016Q2

REPORT INFORMATION
  Report Type: Report from Study
  Country: AT (occurrence: AT)
  Receive Date: 20141120
  Receipt Date: 20160629
  Transmission Date: 20160815
  Serious: Yes (Other)
  Sender: FDA-Public Use
  Company Number: AT-009507513-1411AUT008012

PATIENT

DRUGS (6)
  1. EMTRICITABINE [Concomitant]
     Active Substance: EMTRICITABINE
  2. BOCEPREVIR [Suspect]
     Active Substance: BOCEPREVIR
     Indication: HEPATITIS C
     Dosage: 800 MG, TID
     Route: 048
  3. COPEGUS [Suspect]
     Active Substance: RIBAVIRIN
     Dosage: FROM 1000 TO 1200 MG DAILYUNK, QD
  4. PEGASYS [Suspect]
     Active Substance: PEGINTERFERON ALFA-2A
     Indication: HEPATITIS C
     Dosage: 180 MICROGRAM, QW
  5. TENOFOVIR [Concomitant]
     Active Substance: TENOFOVIR
     Indication: ANTIRETROVIRAL THERAPY
     Dosage: UNK
  6. RALTEGRAVIR POTASSIUM [Concomitant]
     Active Substance: RALTEGRAVIR POTASSIUM
     Indication: ANTIRETROVIRAL THERAPY

REACTIONS (2)
  - Fatigue [Unknown]
  - Bacterial infection [Unknown]
